FAERS Safety Report 6240486-3 (Version None)
Quarter: 2009Q2

REPORT INFORMATION
  Report Type: 
  Country: None (occurrence: None)
  Receive Date: 20090623
  Receipt Date: 20090323
  Transmission Date: 20091009
  Serious: No
  Sender: FDA-Public Use
  Company Number: US-ASTRAZENECA-2009UW07306

PATIENT
  Age: 75 Year
  Sex: Male
  Weight: 54.4 kg

DRUGS (7)
  1. PULMICORT RESPULES [Suspect]
     Indication: CHRONIC OBSTRUCTIVE PULMONARY DISEASE
     Dosage: 0.5 MILLIGRAMS
     Route: 055
     Dates: start: 20080901
  2. PLAVIX [Concomitant]
  3. LISINOPRIL [Concomitant]
  4. LIPITOR [Concomitant]
  5. METFORMIN HCL [Concomitant]
  6. BONIVA [Concomitant]
  7. HUMALOG [Concomitant]

REACTIONS (4)
  - DYSPNOEA [None]
  - HYPERHIDROSIS [None]
  - OBSTRUCTIVE AIRWAYS DISORDER [None]
  - RHINORRHOEA [None]
